FAERS Safety Report 11264571 (Version 2)
Quarter: 2017Q4

REPORT INFORMATION
  Report Type: Spontaneous
  Country: US (occurrence: US)
  Receive Date: 20150713
  Receipt Date: 20171103
  Transmission Date: 20180320
  Serious: No
  Sender: FDA-Public Use
  Company Number: US-ASTRAZENECA-2015SE64073

PATIENT
  Age: 637 Month
  Sex: Female
  Weight: 92.1 kg

DRUGS (9)
  1. TOUJEO [Concomitant]
     Active Substance: INSULIN GLARGINE
     Indication: DIABETES MELLITUS
     Route: 058
  2. BYDUREON [Suspect]
     Active Substance: EXENATIDE
     Indication: TYPE 2 DIABETES MELLITUS
     Route: 058
     Dates: start: 2016
  3. BYDUREON [Suspect]
     Active Substance: EXENATIDE
     Indication: LATENT AUTOIMMUNE DIABETES IN ADULTS
     Route: 058
  4. METFORMIN [Concomitant]
     Active Substance: METFORMIN HYDROCHLORIDE
     Indication: LATENT AUTOIMMUNE DIABETES IN ADULTS
     Route: 048
  5. LANTUS [Concomitant]
     Active Substance: INSULIN GLARGINE
     Indication: LATENT AUTOIMMUNE DIABETES IN ADULTS
     Route: 058
  6. BYDUREON [Suspect]
     Active Substance: EXENATIDE
     Indication: TYPE 2 DIABETES MELLITUS
     Route: 058
  7. BYDUREON [Suspect]
     Active Substance: EXENATIDE
     Indication: LATENT AUTOIMMUNE DIABETES IN ADULTS
     Route: 058
     Dates: start: 2016
  8. NOVOLOG [Concomitant]
     Active Substance: INSULIN ASPART
     Indication: LATENT AUTOIMMUNE DIABETES IN ADULTS
     Dosage: 8 UNITS WITH SLIDING SCALE SUBCUTANEOUSLY BEFORE MEALS
     Route: 058
  9. NOVOLOG [Concomitant]
     Active Substance: INSULIN ASPART
     Indication: DIABETES MELLITUS
     Dosage: 8 UNITS WITH SLIDING SCALE SUBCUTANEOUSLY BEFORE MEALS
     Route: 058

REACTIONS (5)
  - Chronic kidney disease [Not Recovered/Not Resolved]
  - Injury associated with device [Unknown]
  - Blood glucose fluctuation [Not Recovered/Not Resolved]
  - Injection site pain [Unknown]
  - Intentional product misuse [Unknown]

NARRATIVE: CASE EVENT DATE: 201506
